FAERS Safety Report 5307688-1 (Version None)
Quarter: 2007Q2

REPORT INFORMATION
  Report Type: 
  Country: None (occurrence: None)
  Receive Date: 20070419
  Receipt Date: 20070404
  Transmission Date: 20071010
  Serious: Yes (Death)
  Sender: FDA-Public Use
  Company Number: 2007000604

PATIENT
  Age: 49 Year

DRUGS (1)
  1. TARCEVA [Suspect]
     Indication: NON-SMALL CELL LUNG CANCER
     Dosage: UNK (QD), ORAL
     Route: 048
     Dates: start: 20070319, end: 20070319

REACTIONS (3)
  - CHEST PAIN [None]
  - COUGH [None]
  - DYSPNOEA [None]
